FAERS Safety Report 5034953-8 (Version None)
Quarter: 2006Q2

REPORT INFORMATION
  Report Type: 
  Country: None (occurrence: None)
  Receive Date: 20060623
  Receipt Date: 20060623
  Transmission Date: 20061013
  Serious: Yes (Death, Hospitalization)
  Sender: FDA-Public Use
  Company Number: None

PATIENT
  Age: 83 Year
  Sex: Male
  Weight: 117.9 kg

DRUGS (2)
  1. CEFOTETAN [Suspect]
     Indication: PROSTATE CANCER
     Dosage: 1 GM Q 12 H IV BOLUS
     Route: 040
     Dates: start: 20060602, end: 20060610
  2. CEFOTETAN [Suspect]
     Indication: SURGERY
     Dosage: 1 GM Q 12 H IV BOLUS
     Route: 040
     Dates: start: 20060602, end: 20060610

REACTIONS (2)
  - HAEMORRHAGE [None]
  - INTERNATIONAL NORMALISED RATIO INCREASED [None]
